FAERS Safety Report 18917375 (Version 1)
Quarter: 2021Q1

REPORT INFORMATION
  Report Type: Spontaneous
  Country: RU (occurrence: RU)
  Receive Date: 20210219
  Receipt Date: 20210219
  Transmission Date: 20210420
  Serious: Yes (Other)
  Sender: FDA-Public Use
  Company Number: RU-NOVOPROD-787795

PATIENT
  Age: 60 Year
  Sex: Female
  Weight: 113 kg

DRUGS (6)
  1. ACTRAPID [Suspect]
     Active Substance: INSULIN HUMAN
     Indication: TYPE 2 DIABETES MELLITUS
     Dosage: 42 IU, TID
     Route: 058
     Dates: start: 20190709, end: 20190711
  2. TOUJEO [Suspect]
     Active Substance: INSULIN GLARGINE
     Indication: TYPE 2 DIABETES MELLITUS
     Dosage: 112 IU, BID
     Route: 058
     Dates: start: 20191213, end: 20191215
  3. LEVEMIR PENFILL [Suspect]
     Active Substance: INSULIN DETEMIR
     Indication: TYPE 2 DIABETES MELLITUS
     Dosage: 112 IU, BID
     Route: 058
     Dates: start: 20190722, end: 20190723
  4. BIOSULIN R [Suspect]
     Active Substance: INSULIN HUMAN
     Indication: TYPE 2 DIABETES MELLITUS
     Dosage: 14 IU X 3 TIMES PER DAY
     Route: 058
     Dates: start: 20190605, end: 20190607
  5. PROTAPHANE [Suspect]
     Active Substance: INSULIN HUMAN
     Indication: TYPE 2 DIABETES MELLITUS
     Dosage: 112 IU, BID
     Route: 058
     Dates: start: 20190709, end: 20190711
  6. BIOSULIN H (INSULIN) [Suspect]
     Active Substance: INSULIN HUMAN
     Indication: TYPE 2 DIABETES MELLITUS
     Dosage: 56 IU X 2 TIMES PER DAY
     Route: 058
     Dates: start: 20190605, end: 20190607

REACTIONS (4)
  - Injection site induration [Not Recovered/Not Resolved]
  - Visual acuity reduced [Not Recovered/Not Resolved]
  - Blood pressure increased [Not Recovered/Not Resolved]
  - Vision blurred [Not Recovered/Not Resolved]

NARRATIVE: CASE EVENT DATE: 2019
